FAERS Safety Report 16835165 (Version 1)
Quarter: 2019Q3

REPORT INFORMATION
  Report Type: Spontaneous
  Country: US (occurrence: US)
  Receive Date: 20190920
  Receipt Date: 20190920
  Transmission Date: 20191005
  Serious: No
  Sender: FDA-Public Use
  Company Number: US-SA-2019SA261670

PATIENT
  Age: 77 Year
  Sex: Female
  Weight: 62.59 kg

DRUGS (1)
  1. PLAVIX [Suspect]
     Active Substance: CLOPIDOGREL BISULFATE
     Indication: MESENTERIC ARTERY STENT INSERTION
     Dosage: UNK
     Dates: start: 201906

REACTIONS (1)
  - Pain [Unknown]
